FAERS Safety Report 4977404-1 (Version None)
Quarter: 2006Q2

REPORT INFORMATION
  Report Type: 
  Country: None (occurrence: None)
  Receive Date: 20060413
  Receipt Date: 20060328
  Transmission Date: 20061013
  Serious: Yes (Hospitalization)
  Sender: FDA-Public Use
  Company Number: DSA_27973_2006

PATIENT
  Age: 64 Year
  Sex: Female

DRUGS (8)
  1. DILZEM [Suspect]
     Indication: ATRIAL FIBRILLATION
     Dosage: 60 MG TID PO
     Route: 048
     Dates: start: 20060131, end: 20060202
  2. DILZEM [Suspect]
     Indication: ATRIAL FLUTTER
     Dosage: 60 MG TID PO
     Route: 048
     Dates: start: 20060131, end: 20060202
  3. DILTIAZEM [Suspect]
     Indication: ATRIAL FIBRILLATION
     Dosage: 90 MG BID PO
     Route: 048
     Dates: start: 20060203, end: 20060208
  4. DILTIAZEM [Suspect]
     Indication: ATRIAL FLUTTER
     Dosage: 90 MG BID PO
     Route: 048
     Dates: start: 20060203, end: 20060208
  5. DIGOXIN [Concomitant]
  6. FRAXIPARINE [Concomitant]
  7. ASPIRIN [Concomitant]
  8. TAVEGYL [Concomitant]

REACTIONS (8)
  - BLISTER [None]
  - DYSPNOEA [None]
  - DYSURIA [None]
  - ERYTHEMA MULTIFORME [None]
  - MALAISE [None]
  - PRURITUS [None]
  - PYREXIA [None]
  - SKIN EXFOLIATION [None]
